FAERS Safety Report 25356351 (Version 3)
Quarter: 2025Q2

REPORT INFORMATION
  Report Type: Spontaneous
  Country: US (occurrence: US)
  Receive Date: 20250526
  Receipt Date: 20250627
  Transmission Date: 20250717
  Serious: No
  Sender: SANOFI AVENTIS
  Company Number: US-SA-2025SA147787

PATIENT
  Age: 8 Year
  Sex: Male

DRUGS (3)
  1. ELOCTATE [Suspect]
     Active Substance: EFMOROCTOCOG ALFA
     Indication: Factor VIII deficiency
     Route: 042
     Dates: start: 20230310
  2. ELOCTATE [Suspect]
     Active Substance: EFMOROCTOCOG ALFA
     Indication: Factor VIII deficiency
     Route: 042
     Dates: start: 20230310
  3. SODIUM CHLORIDE [Concomitant]
     Active Substance: SODIUM CHLORIDE

REACTIONS (7)
  - Traumatic haemorrhage [Recovered/Resolved]
  - Fall [Unknown]
  - Procedural haemorrhage [Unknown]
  - Haemorrhage [Unknown]
  - Artificial crown procedure [Unknown]
  - Dental cleaning [Unknown]
  - Artificial crown procedure [Unknown]

NARRATIVE: CASE EVENT DATE: 20250101
